FAERS Safety Report 4841116-5 (Version None)
Quarter: 2005Q4

REPORT INFORMATION
  Report Type: 
  Country: None (occurrence: None)
  Receive Date: 20051130
  Receipt Date: 20051005
  Transmission Date: 20060501
  Serious: No
  Sender: FDA-Public Use
  Company Number: US-BRISTOL-MYERS SQUIBB COMPANY-13133574

PATIENT
  Age: 36 Year
  Sex: Male

DRUGS (7)
  1. ABILIFY [Suspect]
     Route: 048
     Dates: start: 20050531, end: 20050901
  2. SEROQUEL [Concomitant]
  3. DEPAKOTE ER [Concomitant]
  4. CELEXA [Concomitant]
  5. LAMICTAL [Concomitant]
  6. TOPRAL [Concomitant]
  7. ASPIRIN [Concomitant]

REACTIONS (1)
  - TARDIVE DYSKINESIA [None]
